FAERS Safety Report 25716940 (Version 1)
Quarter: 2025Q3

REPORT INFORMATION
  Report Type: Spontaneous
  Country: US (occurrence: US)
  Receive Date: 20250822
  Receipt Date: 20250822
  Transmission Date: 20251021
  Serious: No
  Sender: FRESENIUS MEDICAL CARE
  Company Number: US-FMCRTG-FMC-2507-001198

PATIENT
  Age: 83 Year
  Sex: Male
  Weight: 83 kg

DRUGS (3)
  1. DELFLEX WITH DEXTROSE 2.5% LOW MAGNESIUM LOW CALCIUM [Suspect]
     Active Substance: CALCIUM CHLORIDE\DEXTROSE\MAGNESIUM CHLORIDE\SODIUM CHLORIDE\SODIUM LACTATE
     Indication: End stage renal disease
     Route: 033
  2. DELFLEX WITH DEXTROSE 1.5% LOW MAGNESIUM LOW CALCIUM [Suspect]
     Active Substance: CALCIUM CHLORIDE\DEXTROSE\MAGNESIUM CHLORIDE\SODIUM CHLORIDE\SODIUM LACTATE
     Indication: End stage renal disease
     Route: 033
  3. UNSPECIFIED INGREDIENT [Concomitant]
     Active Substance: UNSPECIFIED INGREDIENT
     Indication: Anaemia

REACTIONS (5)
  - Weight decreased [Unknown]
  - Dehydration [Recovering/Resolving]
  - Hypotension [Recovering/Resolving]
  - Hypervolaemia [Recovered/Resolved]
  - Incorrect dose administered [Unknown]
